FAERS Safety Report 19744416 (Version 1)
Quarter: 2021Q3

REPORT INFORMATION
  Report Type: Spontaneous
  Country: US (occurrence: US)
  Receive Date: 20210820
  Receipt Date: 20210820
  Transmission Date: 20211014
  Serious: Yes (Hospitalization)
  Sender: FDA-Public Use
  Company Number: None

PATIENT
  Age: 55 Year
  Sex: Female
  Weight: 63.64 kg

DRUGS (2)
  1. VERSED [Concomitant]
     Active Substance: MIDAZOLAM HYDROCHLORIDE
     Dates: start: 20210818, end: 20210818
  2. VERSED [Suspect]
     Active Substance: MIDAZOLAM HYDROCHLORIDE
     Indication: SEDATION
     Route: 042
     Dates: start: 20210818, end: 20210818

REACTIONS (5)
  - Dystonia [None]
  - Encephalopathy [None]
  - Aggression [None]
  - Agitation [None]
  - Seizure [None]

NARRATIVE: CASE EVENT DATE: 20210818
